FAERS Safety Report 15981706 (Version 1)
Quarter: 2019Q1

REPORT INFORMATION
  Report Type: Spontaneous
  Country: US (occurrence: US)
  Receive Date: 20190219
  Receipt Date: 20190219
  Transmission Date: 20190418
  Serious: Yes (Other)
  Sender: FDA-Public Use
  Company Number: None

PATIENT
  Sex: Female

DRUGS (1)
  1. OLOPATADINE. [Suspect]
     Active Substance: OLOPATADINE

REACTIONS (2)
  - Product substitution issue [None]
  - Adverse event [None]
